FAERS Safety Report 9660489 (Version 1)
Quarter: 2013Q4

REPORT INFORMATION
  Report Type: Spontaneous
  Country: US (occurrence: US)
  Receive Date: 20131031
  Receipt Date: 20131031
  Transmission Date: 20140711
  Serious: No
  Sender: FDA-Public Use
  Company Number: US-PFIZER INC-2013309124

PATIENT
  Sex: 0

DRUGS (2)
  1. XALATAN [Suspect]
     Dosage: 0.005%, 2.5 ML: 1 GTT,
     Route: 047
  2. VIAGRA [Suspect]
     Dosage: 100 MG, 0.5 QD
     Route: 048

REACTIONS (1)
  - Drug hypersensitivity [Unknown]
